FAERS Safety Report 7564163-1 (Version None)
Quarter: 2011Q2

REPORT INFORMATION
  Report Type: 
  Country: None (occurrence: None)
  Receive Date: 20110622
  Receipt Date: 20110608
  Transmission Date: 20111010
  Serious: Yes (Other)
  Sender: FDA-Public Use
  Company Number: KR-GENENTECH-320337

PATIENT
  Sex: Female

DRUGS (2)
  1. LUCENTIS [Suspect]
     Dosage: 0.5 MG, UNKNOWN
     Route: 031
     Dates: start: 20110521
  2. LUCENTIS [Suspect]
     Indication: AGE-RELATED MACULAR DEGENERATION
     Dosage: 0.5 MG, UNKNOWN
     Route: 031
     Dates: start: 20110407

REACTIONS (2)
  - RETINAL TEAR [None]
  - VISUAL IMPAIRMENT [None]
